FAERS Safety Report 9972645 (Version 1)
Quarter: 2014Q1

REPORT INFORMATION
  Report Type: Spontaneous
  Country: US (occurrence: None)
  Receive Date: 20140128
  Receipt Date: 20140128
  Transmission Date: 20141002
  Serious: Yes (Hospitalization)
  Sender: FDA-Public Use
  Company Number: A-US2013-90653

PATIENT
  Age: 48 Year
  Sex: Female

DRUGS (2)
  1. TRACLEER (BOSENTAN) TABLET [Suspect]
     Indication: PULMONARY ARTERIAL HYPERTENSION
     Route: 048
     Dates: start: 201012
  2. ADCIRCA (TADALAFIL) [Concomitant]

REACTIONS (3)
  - Cardiac failure congestive [None]
  - Condition aggravated [None]
  - Treatment noncompliance [None]
